FAERS Safety Report 20673030 (Version 1)
Quarter: 2022Q2

REPORT INFORMATION
  Report Type: Spontaneous
  Country: JP (occurrence: JP)
  Receive Date: 20220405
  Receipt Date: 20220405
  Transmission Date: 20220721
  Serious: Yes (Hospitalization, Other)
  Sender: FDA-Public Use
  Company Number: JP-LUPIN PHARMACEUTICALS INC.-2022-04788

PATIENT
  Age: 91 Year
  Sex: Female
  Weight: 29.3 kg

DRUGS (4)
  1. POTASSIUM [Suspect]
     Active Substance: POTASSIUM
     Indication: Hyperthyroidism
     Dosage: 50 MG
     Route: 065
  2. POTASSIUM [Suspect]
     Active Substance: POTASSIUM
     Indication: Thyrotoxic crisis
  3. HYDROCORTISONE [Suspect]
     Active Substance: HYDROCORTISONE
     Indication: Hyperthyroidism
     Dosage: UNK
     Route: 042
  4. LANDIOLOL [Concomitant]
     Active Substance: LANDIOLOL
     Indication: Tachycardia
     Dosage: UNK (MAXIMUM DOSE)
     Route: 065

REACTIONS (4)
  - Hyperthyroidism [Unknown]
  - Drug ineffective for unapproved indication [Unknown]
  - Stress cardiomyopathy [Unknown]
  - Off label use [Unknown]
